FAERS Safety Report 5340317-X (Version None)
Quarter: 2007Q2

REPORT INFORMATION
  Report Type: 
  Country: None (occurrence: None)
  Receive Date: 20070531
  Receipt Date: 20070523
  Transmission Date: 20071010
  Serious: Yes (Other)
  Sender: FDA-Public Use
  Company Number: PHBS2007JP05844

PATIENT
  Age: 7 Year
  Weight: 32 kg

DRUGS (3)
  1. ZADITEN [Suspect]
     Indication: URTICARIA
     Dosage: UNK, UNK
     Route: 048
     Dates: start: 20070324, end: 20070326
  2. PERIACTIN [Concomitant]
  3. NIPOLAZIN [Suspect]
     Indication: URTICARIA
     Route: 048
     Dates: start: 20070324, end: 20070326

REACTIONS (4)
  - CONDITION AGGRAVATED [None]
  - EPISTAXIS [None]
  - PETECHIAE [None]
  - WHITE BLOOD CELL COUNT DECREASED [None]
